FAERS Safety Report 4679954-4 (Version None)
Quarter: 2005Q2

REPORT INFORMATION
  Report Type: 
  Country: None (occurrence: None)
  Receive Date: 20050531
  Receipt Date: 20050519
  Transmission Date: 20051028
  Serious: No
  Sender: FDA-Public Use
  Company Number: B0382344A

PATIENT
  Age: 31 Year
  Sex: Male

DRUGS (1)
  1. ZYBAN [Suspect]
     Indication: EX-SMOKER
     Dosage: 150 MG /

REACTIONS (3)
  - EPILEPSY [None]
  - FACIAL BONES FRACTURE [None]
  - LOWER LIMB FRACTURE [None]
